FAERS Safety Report 4616681-3 (Version None)
Quarter: 2005Q1

REPORT INFORMATION
  Report Type: 
  Country: None (occurrence: None)
  Receive Date: 20050321
  Receipt Date: 20050311
  Transmission Date: 20050727
  Serious: Yes (Hospitalization)
  Sender: FDA-Public Use
  Company Number: 2005021943

PATIENT
  Age: 15 Year
  Sex: Male
  Weight: 54 kg

DRUGS (5)
  1. ZITHROMAX [Suspect]
     Indication: UPPER RESPIRATORY TRACT INFLAMMATION
     Dosage: 500 MG (1D), ORAL
     Route: 048
     Dates: start: 20050127, end: 20050129
  2. AMBROXOL HYDROCHLORIDE (AMBROXOL HYDROCHLORIDE) [Suspect]
     Indication: UPPER RESPIRATORY TRACT INFLAMMATION
     Dosage: (3 IN 1 D), ORAL
     Route: 048
     Dates: start: 20050127, end: 20050129
  3. TRANEXAMIC ACID (TRANEXAMIC ACID) [Suspect]
     Indication: UPPER RESPIRATORY TRACT INFLAMMATION
     Dosage: (3 IN 1 D), ORAL
     Route: 048
     Dates: start: 20050127, end: 20050129
  4. DEXTROMETHORPAN HYDROBROMIDE (DEXTROMETHORPAN HYDROBROMIDE) [Suspect]
     Indication: UPPER RESPIRATORY TRACT INFECTION
     Dosage: (3 IN 1 D), ORAL
     Route: 048
     Dates: start: 20050127, end: 20050129
  5. LOXOPROFEN SODIUM (LOXOPROFEN SODIUM) [Suspect]
     Indication: UPPER RESPIRATORY TRACT INFLAMMATION
     Dosage: ORAL
     Route: 048
     Dates: start: 20050127, end: 20050129

REACTIONS (15)
  - ALANINE AMINOTRANSFERASE INCREASED [None]
  - ANOREXIA [None]
  - BLOOD LACTATE DEHYDROGENASE INCREASED [None]
  - COLLAGEN DISORDER [None]
  - DRUG ERUPTION [None]
  - DRUG HYPERSENSITIVITY [None]
  - EXANTHEM [None]
  - GINGIVAL SWELLING [None]
  - MALAISE [None]
  - MOUTH ULCERATION [None]
  - ORAL MUCOSAL DISORDER [None]
  - PYREXIA [None]
  - STOMATITIS [None]
  - TRANSAMINASES INCREASED [None]
  - VIRAL RASH [None]
